FAERS Safety Report 5797823-3 (Version None)
Quarter: 2008Q2

REPORT INFORMATION
  Report Type: 
  Country: None (occurrence: None)
  Receive Date: 20080630
  Receipt Date: 20080613
  Transmission Date: 20081010
  Serious: Yes (Death)
  Sender: FDA-Public Use
  Company Number: FABR-1000283

PATIENT
  Age: 59 Year
  Sex: Male

DRUGS (1)
  1. FABRAZYME (AGALSIDASE BETA) POWDER FOR INFUSION [Suspect]
     Indication: FABRY'S DISEASE
     Dosage: INTRAVENOUS
     Route: 042
     Dates: start: 20080401

REACTIONS (1)
  - CHEST PAIN [None]
